FAERS Safety Report 21298377 (Version 2)
Quarter: 2022Q3

REPORT INFORMATION
  Report Type: Spontaneous
  Country: CN (occurrence: CN)
  Receive Date: 20220906
  Receipt Date: 20220916
  Transmission Date: 20221026
  Serious: Yes (Other)
  Sender: FDA-Public Use
  Company Number: CN-NOVARTISPH-NVSC2022CN199192

PATIENT
  Sex: Male

DRUGS (1)
  1. TEGRETOL [Suspect]
     Active Substance: CARBAMAZEPINE
     Indication: Epilepsy
     Dosage: 1 DOSAGE FORM, QD, (USED FOR 7 OR 8 YEARS (NEARLY 10 YEARS))
     Route: 048
     Dates: start: 20220912

REACTIONS (2)
  - Epilepsy [Unknown]
  - Product availability issue [Unknown]
